FAERS Safety Report 8707463 (Version 2)
Quarter: 2013Q4

REPORT INFORMATION
  Report Type: Report from Study
  Country: US (occurrence: US)
  Receive Date: 20120804
  Receipt Date: 20131101
  Transmission Date: 20140711
  Serious: No
  Sender: FDA-Public Use
  Company Number: US-009507513-1207USA010362

PATIENT
  Sex: Male

DRUGS (6)
  1. REBETOL [Suspect]
     Indication: CHRONIC HEPATITIS C
     Dosage: UNK
     Dates: start: 20020601, end: 20030501
  2. REBETOL [Suspect]
     Dosage: UNK
     Dates: start: 20090901, end: 20100301
  3. REBETOL [Suspect]
     Dosage: UNK
     Dates: start: 20120403
  4. PEGASYS [Suspect]
     Indication: CHRONIC HEPATITIS C
     Dosage: UNK
     Dates: start: 20020601, end: 20030501
  5. PEGASYS [Suspect]
     Dosage: UNK
     Dates: start: 20090901, end: 20100301
  6. PEGASYS [Suspect]
     Dosage: UNK
     Dates: start: 20120403

REACTIONS (2)
  - Hepatitis C [Unknown]
  - Drug ineffective [Unknown]
